FAERS Safety Report 4867072-1 (Version None)
Quarter: 2005Q4

REPORT INFORMATION
  Report Type: 
  Country: None (occurrence: None)
  Receive Date: 20051221
  Receipt Date: 20051221
  Transmission Date: 20060501
  Serious: Yes (Other)
  Sender: FDA-Public Use
  Company Number: HQWYE944612DEC05

PATIENT
  Age: 49 Year
  Sex: Male

DRUGS (2)
  1. PANTOPRAZOLE SODIUM [Suspect]
     Dosage: 20 MG 2X PER 1 DAY ORAL
     Route: 048
     Dates: start: 20050101, end: 20050101
  2. PANTOPRAZOLE SODIUM [Suspect]
     Dosage: 20 MG 2X PER 1 DAY ORAL
     Route: 048
     Dates: start: 20050101

REACTIONS (2)
  - BILE DUCT OBSTRUCTION [None]
  - HEPATITIS [None]
